FAERS Safety Report 5449699-1 (Version None)
Quarter: 2007Q3

REPORT INFORMATION
  Report Type: 
  Country: None (occurrence: None)
  Receive Date: 20070910
  Receipt Date: 20070823
  Transmission Date: 20080115
  Serious: Yes (Hospitalization)
  Sender: FDA-Public Use
  Company Number: 8026276

PATIENT
  Age: 65 Year
  Sex: Male

DRUGS (12)
  1. KEPPRA [Suspect]
     Indication: CONVULSION
     Dosage: 500 MG 2/D PO
     Route: 048
     Dates: start: 20070704, end: 20070706
  2. ASPIRIN [Concomitant]
  3. CYCLIZINE [Concomitant]
  4. DOXAZOSIN [Concomitant]
  5. GENTAMICIN [Concomitant]
  6. NEORECORMON [Concomitant]
  7. OMEPRAZOLE [Concomitant]
  8. PARACETAMOL [Concomitant]
  9. PHENYTOIN [Concomitant]
  10. RAMIPRIL [Concomitant]
  11. SERETIDE [Concomitant]
  12. VANCOMYCIN [Concomitant]

REACTIONS (3)
  - ATHETOSIS [None]
  - LOSS OF CONSCIOUSNESS [None]
  - SOMNOLENCE [None]
